FAERS Safety Report 10367345 (Version 2)
Quarter: 2014Q3

REPORT INFORMATION
  Report Type: Spontaneous
  Country: GB (occurrence: None)
  Receive Date: 20140805
  Receipt Date: 20140908
  Transmission Date: 20150326
  Serious: Yes (Death)
  Sender: FDA-Public Use
  Company Number: 2014MPI00905

PATIENT
  Age: 53 Year
  Sex: Female
  Weight: 60 kg

DRUGS (8)
  1. VINBLASTINE (VINBLASTINE SULFATE) INJECTION [Suspect]
     Active Substance: VINBLASTINE
     Indication: HODGKIN^S DISEASE
     Dosage: 10 MG, Q14D
     Dates: start: 20140711, end: 20140719
  2. ALLOPURINOL (ALLOPURINOL) [Concomitant]
     Active Substance: ALLOPURINOL
  3. FERROUS SULFATE [Concomitant]
     Active Substance: FERROUS SULFATE\FERROUS SULFATE, DRIED
  4. FORTISIP [Concomitant]
     Active Substance: CARBOHYDRATES\FATTY ACIDS\MINERALS\PROTEIN\VITAMINS
  5. DOXORUBICIN (DOXORUBICIN) INJECTION [Suspect]
     Active Substance: DOXORUBICIN
     Indication: HODGKIN^S DISEASE
     Dosage: 40 MG, Q14D
     Route: 042
     Dates: start: 20140711, end: 20140719
  6. DACARBAZINE (DACARBAZINE) INJECTION [Suspect]
     Active Substance: DACARBAZINE
     Indication: HODGKIN^S DISEASE
     Dosage: 620 MG, Q14D, INTRAVENOUS
     Route: 042
     Dates: start: 20140711, end: 20140719
  7. METOCLOPRAMIDE HYDROCHLORIDE. [Suspect]
     Active Substance: METOCLOPRAMIDE HYDROCHLORIDE
  8. BRENTUXIMAB VEDOTIN (BRENTUXIMAB VEDOTIN) INJECTION [Suspect]
     Active Substance: BRENTUXIMAB VEDOTIN
     Indication: HODGKIN^S DISEASE
     Dosage: 70 MG, Q14D
     Route: 042
     Dates: start: 20140711, end: 20140719

REACTIONS (15)
  - Neutropenic sepsis [None]
  - Blood alkaline phosphatase increased [None]
  - Blood calcium decreased [None]
  - Nausea [None]
  - Blood bilirubin increased [None]
  - Haematocrit decreased [None]
  - Syncope [None]
  - Disease progression [None]
  - Vomiting [None]
  - Neutropenia [None]
  - Hodgkin^s disease [None]
  - Diarrhoea [None]
  - C-reactive protein increased [None]
  - Haemoglobin decreased [None]
  - Blood potassium decreased [None]

NARRATIVE: CASE EVENT DATE: 20140527
